FAERS Safety Report 25920666 (Version 1)
Quarter: 2025Q4

REPORT INFORMATION
  Report Type: Spontaneous
  Country: US (occurrence: US)
  Receive Date: 20251014
  Receipt Date: 20251014
  Transmission Date: 20260119
  Serious: No
  Sender: MYLAN
  Company Number: US-MYLANLABS-2025M1085338

PATIENT
  Sex: Female
  Weight: 51.71 kg

DRUGS (4)
  1. XULANE [Suspect]
     Active Substance: ETHINYL ESTRADIOL\NORELGESTROMIN
     Indication: Contraception
     Dosage: UNK UNK, QD (PER DAY, ONCE WEEKLY)
     Dates: start: 2025
  2. XULANE [Suspect]
     Active Substance: ETHINYL ESTRADIOL\NORELGESTROMIN
     Dosage: UNK UNK, QD (PER DAY, ONCE WEEKLY)
     Route: 062
     Dates: start: 2025
  3. XULANE [Suspect]
     Active Substance: ETHINYL ESTRADIOL\NORELGESTROMIN
     Dosage: UNK UNK, QD (PER DAY, ONCE WEEKLY)
     Route: 062
     Dates: start: 2025
  4. XULANE [Suspect]
     Active Substance: ETHINYL ESTRADIOL\NORELGESTROMIN
     Dosage: UNK UNK, QD (PER DAY, ONCE WEEKLY)
     Dates: start: 2025

REACTIONS (4)
  - Application site pain [Unknown]
  - Application site reaction [Unknown]
  - Pruritus [Unknown]
  - Application site scar [Unknown]

NARRATIVE: CASE EVENT DATE: 20250101
